FAERS Safety Report 23684422 (Version 5)
Quarter: 2024Q2

REPORT INFORMATION
  Report Type: Spontaneous
  Country: US (occurrence: US)
  Receive Date: 20240328
  Receipt Date: 20240409
  Transmission Date: 20240716
  Serious: No
  Sender: FDA-Public Use
  Company Number: US-PFIZER INC-202400073848

PATIENT
  Age: 23 Year
  Sex: Male

DRUGS (1)
  1. EUCRISA [Suspect]
     Active Substance: CRISABOROLE
     Indication: Neurodermatitis
     Dosage: 1 APP APPLIED TOPICALLY 2 TIMES A DAY
     Route: 061

REACTIONS (3)
  - Treatment failure [Unknown]
  - Rash [Unknown]
  - Rash erythematous [Unknown]
